APPROVED DRUG PRODUCT: ALLOPURINOL
Active Ingredient: ALLOPURINOL
Strength: 100MG
Dosage Form/Route: TABLET;ORAL
Application: A211807 | Product #001
Applicant: LUPIN LTD
Approved: Dec 14, 2023 | RLD: No | RS: No | Type: DISCN